FAERS Safety Report 5840096-3 (Version None)
Quarter: 2008Q3

REPORT INFORMATION
  Report Type: 
  Country: None (occurrence: None)
  Receive Date: 20080811
  Receipt Date: 20080807
  Transmission Date: 20090109
  Serious: Yes (Hospitalization)
  Sender: FDA-Public Use
  Company Number: B0530596A

PATIENT
  Age: 42 Year
  Sex: Female

DRUGS (4)
  1. LAMIVUDINE [Suspect]
     Indication: HIV INFECTION
  2. CO-TRIMOXAZOLE [Suspect]
     Indication: PROPHYLAXIS
  3. STAVUDINE [Suspect]
     Indication: HIV INFECTION
  4. NEVIRAPINE [Suspect]
     Indication: HIV INFECTION

REACTIONS (2)
  - FANCONI SYNDROME [None]
  - LACTIC ACIDOSIS [None]
